FAERS Safety Report 19455110 (Version 4)
Quarter: 2021Q4

REPORT INFORMATION
  Report Type: Spontaneous
  Country: US (occurrence: US)
  Receive Date: 20210623
  Receipt Date: 20211019
  Transmission Date: 20220303
  Serious: Yes (Other)
  Sender: FDA-Public Use
  Company Number: US-PFIZER INC-2021690734

PATIENT
  Age: 88 Year
  Sex: Male
  Weight: 68.04 kg

DRUGS (14)
  1. VYNDAMAX [Suspect]
     Active Substance: TAFAMIDIS
     Indication: Amyloidosis
     Dosage: 61 MG, 1X/DAY
     Route: 048
     Dates: start: 20210610
  2. ELIQUIS [Suspect]
     Active Substance: APIXABAN
     Indication: Cerebrovascular accident prophylaxis
     Dosage: 5 MG, 2X/DAY
     Route: 048
     Dates: start: 201610
  3. ELIQUIS [Suspect]
     Active Substance: APIXABAN
     Indication: Atrial fibrillation
  4. PRO OMEGA D [Concomitant]
     Dosage: UNK
     Route: 065
  5. UBIQUINOL [Concomitant]
     Active Substance: UBIQUINOL
     Dosage: UNK
     Route: 065
  6. VITAMIN D3 [Concomitant]
     Active Substance: CHOLECALCIFEROL
     Dosage: UNK
     Route: 065
  7. MAGNESIUM SULFATE [Concomitant]
     Active Substance: MAGNESIUM SULFATE
     Dosage: UNK
     Route: 065
  8. POTASSIUM CHLORIDE [Concomitant]
     Active Substance: POTASSIUM CHLORIDE
     Dosage: UNK
     Route: 065
  9. FUROSEMIDE [Concomitant]
     Active Substance: FUROSEMIDE
     Dosage: UNK
     Route: 065
  10. ASPIRIN [Concomitant]
     Active Substance: ASPIRIN
     Dosage: 81 MILLIGRAM
     Route: 065
  11. TADALAFIL [Concomitant]
     Active Substance: TADALAFIL
     Dosage: 5 MILLIGRAM
     Route: 065
  12. PRAVASTATIN +PHARMA [Concomitant]
     Dosage: 20 MILLIGRAM
     Route: 065
  13. TRANDOLAPRIL [Concomitant]
     Active Substance: TRANDOLAPRIL
     Dosage: UNK
     Route: 065
  14. LEVOTHYROXINE SODIUM [Concomitant]
     Active Substance: LEVOTHYROXINE SODIUM
     Dosage: UNK
     Route: 065

REACTIONS (5)
  - Haemorrhage [Unknown]
  - Wound [Not Recovered/Not Resolved]
  - Poor quality product administered [Unknown]
  - Product temperature excursion issue [Unknown]
  - Intentional dose omission [Unknown]

NARRATIVE: CASE EVENT DATE: 20210610
